FAERS Safety Report 4983828-9 (Version None)
Quarter: 2006Q1

REPORT INFORMATION
  Report Type: 
  Country: None (occurrence: None)
  Receive Date: 20060301
  Receipt Date: 20051216
  Transmission Date: 20060701
  Serious: No
  Sender: FDA-Public Use
  Company Number: S05-USA-05265-01

PATIENT
  Age: 84 Year
  Sex: Female

DRUGS (8)
  1. NAMENDA [Suspect]
     Indication: DEMENTIA
     Dosage: 10 MG BID PO
     Route: 048
     Dates: start: 20040101
  2. NAMENDA [Suspect]
     Indication: DEMENTIA
     Dosage: 5 MG QD PO
     Route: 047
     Dates: start: 20040101, end: 20040101
  3. NAMENDA [Suspect]
     Indication: DEMENTIA
     Dosage: 5 MG BID PO
     Route: 048
     Dates: start: 20040101, end: 20040101
  4. NAMENDA [Suspect]
     Indication: DEMENTIA
     Dosage: 15 MG QD PO
     Route: 048
     Dates: start: 20040101, end: 20040101
  5. EXELON [Concomitant]
     Indication: DEMENTIA
     Dosage: 6 MG BID PO
     Route: 048
     Dates: end: 20051214
  6. EXELON [Suspect]
     Indication: DEMENTIA
     Dosage: 3 MG BID PO
     Route: 048
     Dates: start: 20051215
  7. TOPAMAX [Concomitant]
  8. ATACAND [Concomitant]

REACTIONS (2)
  - CONFUSIONAL STATE [None]
  - HYPERHIDROSIS [None]
